FAERS Safety Report 5453914-8 (Version None)
Quarter: 2007Q3

REPORT INFORMATION
  Report Type: 
  Country: None (occurrence: None)
  Receive Date: 20070917
  Receipt Date: 20070906
  Transmission Date: 20080115
  Serious: Yes (Other)
  Sender: FDA-Public Use
  Company Number: BR-SANOFI-SYNTHELABO-A01200707082

PATIENT
  Sex: Male

DRUGS (5)
  1. SUPERAN [Concomitant]
     Dosage: 50 MG
  2. ELOXATIN [Suspect]
     Indication: PANCREATIC CARCINOMA
     Route: 042
     Dates: start: 20061221, end: 20061221
  3. ELOXATIN [Suspect]
     Indication: HEPATIC NEOPLASM
     Route: 042
     Dates: start: 20061221, end: 20061221
  4. ANZEMET [Concomitant]
     Dosage: 100 MG
     Route: 042
     Dates: start: 20061221
  5. GEMZAR [Concomitant]
     Route: 042
     Dates: start: 20061222, end: 20061222

REACTIONS (9)
  - COUGH [None]
  - DYSPNOEA [None]
  - ERYTHEMA [None]
  - EYE PRURITUS [None]
  - LARYNGOSPASM [None]
  - OCULAR HYPERAEMIA [None]
  - PRURITUS [None]
  - THROAT TIGHTNESS [None]
  - TREMOR [None]
